FAERS Safety Report 4310707-2 (Version None)
Quarter: 2004Q1

REPORT INFORMATION
  Report Type: 
  Country: None (occurrence: None)
  Receive Date: 20040301
  Receipt Date: 20031211
  Transmission Date: 20041129
  Serious: No
  Sender: FDA-Public Use
  Company Number: WAES 0312USA01325

PATIENT
  Age: 68 Year
  Sex: Male

DRUGS (4)
  1. ZETIA [Suspect]
     Indication: BLOOD CHOLESTEROL INCREASED
     Dosage: 10 MG, DAILY, PO
     Route: 048
     Dates: start: 20031115
  2. LASIX [Concomitant]
  3. [THERAPY UNSPECIFIED] [Concomitant]
  4. STATIN [UNSPECIFIED] [Concomitant]

REACTIONS (1)
  - PANCREATITIS [None]
